FAERS Safety Report 7936054-5 (Version None)
Quarter: 2011Q4

REPORT INFORMATION
  Report Type: 
  Country: None (occurrence: None)
  Receive Date: 20111121
  Receipt Date: 20111109
  Transmission Date: 20120403
  Serious: Yes (Hospitalization)
  Sender: FDA-Public Use
  Company Number: USA/USA/11/0021973

PATIENT
  Age: 37 Year
  Sex: Female

DRUGS (4)
  1. BUPROPION HCL [Suspect]
     Indication: PRODUCT USED FOR UNKNOWN INDICATION
     Dosage: UNKNOWN, UNKNOWN
  2. INSULIN [Suspect]
     Indication: CARDIOGENIC SHOCK
     Dosage: TIME INGESTION TO HDI - 7 H; HDI BOLUS - 70 IU; HDI DRIP RANGE 70-770 IU/H; MAX DRIP - 11 IU/KG/H; T
  3. CITALOPRAM HYDROBROMIDE [Suspect]
     Indication: PRODUCT USED FOR UNKNOWN INDICATION
     Dosage: UNKNOWN, UNKNOWN
  4. PROPRANOLOL [Suspect]
     Indication: PRODUCT USED FOR UNKNOWN INDICATION
     Dosage: UNKNOWN, UNKNOWN

REACTIONS (4)
  - HYPOGLYCAEMIA [None]
  - CARDIOGENIC SHOCK [None]
  - MULTIPLE DRUG OVERDOSE [None]
  - HYPOKALAEMIA [None]
